FAERS Safety Report 5324148-2 (Version None)
Quarter: 2007Q2

REPORT INFORMATION
  Report Type: 
  Country: None (occurrence: None)
  Receive Date: 20070507
  Receipt Date: 20070420
  Transmission Date: 20071010
  Serious: Yes (Life-Threatening)
  Sender: FDA-Public Use
  Company Number: 2007BM000048

PATIENT
  Age: 62 Year
  Sex: Female

DRUGS (4)
  1. PREDNISOLONE [Suspect]
     Indication: WEGENER'S GRANULOMATOSIS
     Dosage: SEE IMAGE
     Route: 048
  2. AZATHIOPRINE [Suspect]
     Indication: WEGENER'S GRANULOMATOSIS
     Dosage: 50 MG; QD
  3. CYCLOPHOSPHAMIDE [Suspect]
     Indication: WEGENER'S GRANULOMATOSIS
     Dosage: 100 MG; QD
  4. ORAPRED [Concomitant]

REACTIONS (14)
  - C-REACTIVE PROTEIN INCREASED [None]
  - CARDIAC ARREST [None]
  - COMPUTERISED TOMOGRAM ABNORMAL [None]
  - CONDITION AGGRAVATED [None]
  - EXOPHTHALMOS [None]
  - EYE ABSCESS [None]
  - EYE DISORDER [None]
  - EYE MOVEMENT DISORDER [None]
  - FIBROSIS [None]
  - GENERAL PHYSICAL HEALTH DETERIORATION [None]
  - LOCAL SWELLING [None]
  - SEPSIS [None]
  - STREPTOCOCCAL INFECTION [None]
  - WEGENER'S GRANULOMATOSIS [None]
